FAERS Safety Report 25589302 (Version 1)
Quarter: 2025Q3

REPORT INFORMATION
  Report Type: Report from Study
  Country: US (occurrence: US)
  Receive Date: 20250722
  Receipt Date: 20250722
  Transmission Date: 20251021
  Serious: Yes (Other)
  Sender: ALEXION PHARMACEUTICALS
  Company Number: US-AstraZeneca-CH-00910501A

PATIENT
  Age: 90 Year
  Sex: Male

DRUGS (3)
  1. OLAPARIB [Suspect]
     Active Substance: OLAPARIB
     Route: 065
  2. ABIRATERONE ACETATE [Concomitant]
     Active Substance: ABIRATERONE ACETATE
     Route: 065
  3. ORGOVYX [Concomitant]
     Active Substance: RELUGOLIX
     Dosage: 120 MILLIGRAM, QD
     Route: 065

REACTIONS (3)
  - Thyroid cancer [Unknown]
  - Prostatic specific antigen increased [Unknown]
  - Therapeutic product effect decreased [Unknown]

NARRATIVE: CASE EVENT DATE: 20250714
